FAERS Safety Report 6863008-2 (Version None)
Quarter: 2010Q3

REPORT INFORMATION
  Report Type: 
  Country: None (occurrence: None)
  Receive Date: 20100719
  Receipt Date: 20100707
  Transmission Date: 20110219
  Serious: Yes (Hospitalization)
  Sender: FDA-Public Use
  Company Number: 007783

PATIENT
  Sex: Female
  Weight: 92 kg

DRUGS (10)
  1. CERTOLIZUMAB PEGOL (CERTOLIZUMAB PEGOL) [Suspect]
     Indication: RHEUMATOID ARTHRITIS
     Dosage: (SUBCUTANEOUS), (1 ML 1X/2 WEEKS SUBCUTANEOUS)
     Route: 058
     Dates: start: 20080430, end: 20100218
  2. CERTOLIZUMAB PEGOL (CERTOLIZUMAB PEGOL) [Suspect]
     Indication: RHEUMATOID ARTHRITIS
     Dosage: (SUBCUTANEOUS), (1 ML 1X/2 WEEKS SUBCUTANEOUS)
     Route: 058
     Dates: start: 20051020
  3. METHOTREXATE [Concomitant]
  4. FOLIC ACID [Concomitant]
  5. METHYLPREDNISOLONE [Concomitant]
  6. BRUFEN /00109201/ [Concomitant]
  7. DOXYCYCLINE [Concomitant]
  8. ESPUMISAN /00159501/ [Concomitant]
  9. CELIPROLOL [Concomitant]
  10. IBUPROFEN TABLETS [Concomitant]

REACTIONS (3)
  - OEDEMA PERIPHERAL [None]
  - RASH ERYTHEMATOUS [None]
  - RASH MACULAR [None]
